FAERS Safety Report 12833959 (Version 1)
Quarter: 2016Q4

REPORT INFORMATION
  Report Type: Spontaneous
  Country: US (occurrence: US)
  Receive Date: 20161010
  Receipt Date: 20161010
  Transmission Date: 20170207
  Serious: Yes (Death, Life-Threatening, Hospitalization)
  Sender: FDA-Public Use
  Company Number: US-JNJFOC-20161006854

PATIENT
  Age: 52 Year
  Sex: Male
  Weight: 176.9 kg

DRUGS (8)
  1. INVOKANA [Suspect]
     Active Substance: CANAGLIFLOZIN
     Indication: DIABETES MELLITUS
     Route: 048
     Dates: start: 201504, end: 20160418
  2. METHADONE [Concomitant]
     Active Substance: METHADONE HYDROCHLORIDE
     Route: 065
  3. HUMALOG [Concomitant]
     Active Substance: INSULIN LISPRO
     Route: 065
  4. IBUPROFEN. [Concomitant]
     Active Substance: IBUPROFEN
     Route: 065
  5. LISINOPRIL. [Concomitant]
     Active Substance: LISINOPRIL
     Route: 065
  6. ASPIRIN. [Concomitant]
     Active Substance: ASPIRIN
     Route: 065
  7. TUMS [Concomitant]
     Active Substance: CALCIUM CARBONATE
     Route: 065
  8. FUROSEMIDE. [Concomitant]
     Active Substance: FUROSEMIDE
     Route: 065

REACTIONS (18)
  - Hepatic failure [Unknown]
  - Renal failure [Unknown]
  - Death [Fatal]
  - Abdominal distension [Unknown]
  - Asthenia [Unknown]
  - Hypotension [Unknown]
  - Chromaturia [Unknown]
  - Blood potassium increased [Unknown]
  - Heart rate irregular [Unknown]
  - Dehydration [Unknown]
  - Weight increased [Unknown]
  - Swelling [Unknown]
  - Back pain [Unknown]
  - Confusional state [Unknown]
  - Respiratory distress [Unknown]
  - Localised infection [Unknown]
  - Urinary tract infection [Unknown]
  - Dyspnoea [Unknown]

NARRATIVE: CASE EVENT DATE: 20160418
